FAERS Safety Report 22098370 (Version 1)
Quarter: 2023Q1

REPORT INFORMATION
  Report Type: Report from Study
  Country: US (occurrence: US)
  Receive Date: 20230315
  Receipt Date: 20230315
  Transmission Date: 20230417
  Serious: Yes (Hospitalization)
  Sender: FDA-Public Use
  Company Number: US-002147023-NVSC2023US055857

PATIENT
  Sex: Female
  Weight: 72.574 kg

DRUGS (1)
  1. TREPROSTINIL [Suspect]
     Active Substance: TREPROSTINIL
     Indication: Pulmonary arterial hypertension
     Dosage: 63 NG/KG/MIN, CONT
     Route: 058
     Dates: start: 20220113

REACTIONS (1)
  - Pneumonia [Unknown]
